FAERS Safety Report 9155487 (Version 1)
Quarter: 2013Q1

REPORT INFORMATION
  Report Type: Spontaneous
  Country: US (occurrence: US)
  Receive Date: 20130311
  Receipt Date: 20130311
  Transmission Date: 20140127
  Serious: No
  Sender: FDA-Public Use
  Company Number: US-009507513-1303USA004882

PATIENT
  Sex: Male
  Weight: 172.34 kg

DRUGS (1)
  1. CORICIDIN HBP FLU [Suspect]
     Indication: RHINORRHOEA
     Dosage: UNK, Q4H
     Route: 048
     Dates: start: 201302

REACTIONS (1)
  - Drug effect decreased [Unknown]
